FAERS Safety Report 25454928 (Version 1)
Quarter: 2025Q2

REPORT INFORMATION
  Report Type: Report from Study
  Country: US (occurrence: US)
  Receive Date: 20250619
  Receipt Date: 20250619
  Transmission Date: 20250716
  Serious: Yes (Death, Life-Threatening, Other)
  Sender: RANBAXY
  Company Number: US-SUN PHARMACEUTICAL INDUSTRIES LTD-2025R1-512651

PATIENT
  Age: 40 Year
  Sex: Female

DRUGS (3)
  1. MANNITOL [Suspect]
     Active Substance: MANNITOL
     Indication: Haemorrhage intracranial
     Route: 065
  2. LABETALOL [Suspect]
     Active Substance: LABETALOL
     Indication: Tachycardia
     Route: 065
  3. SODIUM CHLORIDE [Suspect]
     Active Substance: SODIUM CHLORIDE
     Indication: Haemorrhage intracranial
     Route: 065

REACTIONS (4)
  - Areflexia [Fatal]
  - Brain death [Fatal]
  - Pupillary reflex impaired [Fatal]
  - Treatment failure [Fatal]
